FAERS Safety Report 23184161 (Version 1)
Quarter: 2023Q4

REPORT INFORMATION
  Report Type: Spontaneous
  Country: JP (occurrence: JP)
  Receive Date: 20231115
  Receipt Date: 20231115
  Transmission Date: 20240110
  Serious: Yes (Hospitalization, Other)
  Sender: FDA-Public Use
  Company Number: JP-BRISTOL-MYERS SQUIBB COMPANY-2023-162189

PATIENT
  Age: 65 Year
  Sex: Male

DRUGS (2)
  1. NIVOLUMAB [Suspect]
     Active Substance: NIVOLUMAB
     Indication: Lung adenocarcinoma
  2. NIVOLUMAB [Suspect]
     Active Substance: NIVOLUMAB

REACTIONS (3)
  - Immune-mediated gastritis [Recovering/Resolving]
  - Immune-mediated cholangitis [Recovering/Resolving]
  - Haemobilia [Recovering/Resolving]
